FAERS Safety Report 17767669 (Version 2)
Quarter: 2020Q4

REPORT INFORMATION
  Report Type: Report from Study
  Country: GB (occurrence: GB)
  Receive Date: 20200511
  Receipt Date: 20201201
  Transmission Date: 20210113
  Serious: Yes (Hospitalization)
  Sender: FDA-Public Use
  Company Number: GB-ROCHE-2593593

PATIENT
  Age: 48 Year
  Sex: Female
  Weight: 83 kg

DRUGS (6)
  1. PACLITAXEL. [Suspect]
     Active Substance: PACLITAXEL
     Indication: TRIPLE NEGATIVE BREAST CANCER
     Dosage: ON 15/APR/2020,SHE RECEIVED THE MOST RECENT DOSE OF THE INTRAVENOUS PACLITAXEL 144 MG PRIOR TO AE/SA
     Route: 042
     Dates: start: 20200128
  2. ATEZOLIZUMAB. [Suspect]
     Active Substance: ATEZOLIZUMAB
     Indication: TRIPLE NEGATIVE BREAST CANCER
     Dosage: ON 22/APR/2020,SHE RECEIVED THE MOST RECENT DOSE OF THE INTRAVENOUS ATEZOLIZUMAB 840 MG PRIOR TO AE/
     Route: 042
     Dates: start: 20200128
  3. PEGFILGRASTIM [Suspect]
     Active Substance: PEGFILGRASTIM
     Indication: TRIPLE NEGATIVE BREAST CANCER
     Dosage: CYCLE 4 VISIT 1 SUBSEQUENT DOSE RECEIVED 06/MAY/2020 AND 20/MAY/2020
     Route: 058
     Dates: start: 20200422
  4. FILGRASTIM [Suspect]
     Active Substance: FILGRASTIM
     Indication: TRIPLE NEGATIVE BREAST CANCER
     Dosage: CYCLE 4 VISIT 1
     Route: 058
     Dates: start: 20200422
  5. CYCLOPHOSPHAMIDE. [Suspect]
     Active Substance: CYCLOPHOSPHAMIDE
     Indication: TRIPLE NEGATIVE BREAST CANCER
     Dosage: ON 22/APR/2020, SHE RECEIVED THE MOST RECENT DOSE OF THE INTRAVENOUS CYCLOPHOSPHAMIDE 1880 MG PRIOR
     Route: 042
     Dates: start: 20200422
  6. EPIRUBICIN [Suspect]
     Active Substance: EPIRUBICIN
     Indication: TRIPLE NEGATIVE BREAST CANCER
     Dosage: ON 22/APR/2020,SHE RECEIVED THE MOST RECENT DOSE OF THE INTRAVENOUS EPIRUBICIN 162 MG PRIOR TO AE/SA
     Route: 042
     Dates: start: 20200422

REACTIONS (1)
  - Pyrexia [Recovered/Resolved]

NARRATIVE: CASE EVENT DATE: 20200427
